FAERS Safety Report 13026260 (Version 2)
Quarter: 2017Q3

REPORT INFORMATION
  Report Type: Spontaneous
  Country: PY (occurrence: PY)
  Receive Date: 20161214
  Receipt Date: 20170817
  Transmission Date: 20171127
  Serious: Yes (Hospitalization)
  Sender: FDA-Public Use
  Company Number: PY-SA-2016SA223722

PATIENT
  Sex: Female
  Weight: 78 kg

DRUGS (1)
  1. MYOZYME [Suspect]
     Active Substance: ALGLUCOSIDASE ALFA
     Indication: GLYCOGEN STORAGE DISEASE TYPE II
     Route: 041
     Dates: start: 201506

REACTIONS (5)
  - Acidosis [Unknown]
  - Infection [Unknown]
  - Abdominal pain [Unknown]
  - Hypercapnia [Not Recovered/Not Resolved]
  - Pyrexia [Unknown]
